FAERS Safety Report 14906482 (Version 1)
Quarter: 2018Q2

REPORT INFORMATION
  Report Type: Spontaneous
  Country: KR (occurrence: KR)
  Receive Date: 20180517
  Receipt Date: 20180517
  Transmission Date: 20180711
  Serious: Yes (Hospitalization, Other)
  Sender: FDA-Public Use
  Company Number: KR-009507513-1805KOR005503

PATIENT
  Sex: Male

DRUGS (2)
  1. KEYTRUDA [Suspect]
     Active Substance: PEMBROLIZUMAB
     Indication: GALLBLADDER CANCER
     Dosage: UNK
     Dates: start: 20180504
  2. KEYTRUDA [Suspect]
     Active Substance: PEMBROLIZUMAB
     Dosage: UNK
     Dates: start: 20180417

REACTIONS (4)
  - Duodenal ulcer [Unknown]
  - Product use in unapproved indication [Unknown]
  - Constipation [Unknown]
  - Essential hypertension [Unknown]

NARRATIVE: CASE EVENT DATE: 2018
